FAERS Safety Report 17841955 (Version 1)
Quarter: 2020Q2

REPORT INFORMATION
  Report Type: Spontaneous
  Country: IE (occurrence: IE)
  Receive Date: 20200529
  Receipt Date: 20200529
  Transmission Date: 20200714
  Serious: Yes (Life-Threatening, Other)
  Sender: FDA-Public Use
  Company Number: IE-B.I. PHARMACEUTICALS,INC./RIDGEFIELD-2020-12-026992

PATIENT
  Age: 47 Year
  Sex: Male

DRUGS (1)
  1. MIRAPEXIN [Suspect]
     Active Substance: PRAMIPEXOLE
     Indication: PRODUCT USED FOR UNKNOWN INDICATION
     Dosage: 2 X 2 TABLETS DAILY
     Route: 048

REACTIONS (5)
  - Compulsive sexual behaviour [Not Recovered/Not Resolved]
  - Feeling guilty [Not Recovered/Not Resolved]
  - Gambling disorder [Not Recovered/Not Resolved]
  - Suicidal ideation [Not Recovered/Not Resolved]
  - Compulsive shopping [Not Recovered/Not Resolved]
